FAERS Safety Report 6180044-2 (Version None)
Quarter: 2009Q2

REPORT INFORMATION
  Report Type: 
  Country: None (occurrence: None)
  Receive Date: 20090505
  Receipt Date: 20090429
  Transmission Date: 20091009
  Serious: Yes (Hospitalization)
  Sender: FDA-Public Use
  Company Number: GR-ABBOTT-07P-066-0428595-00

PATIENT
  Sex: Male
  Weight: 80 kg

DRUGS (13)
  1. HUMIRA [Suspect]
     Indication: RHEUMATOID ARTHRITIS
     Route: 058
     Dates: start: 20050203, end: 20070522
  2. MONOSORDIL [Concomitant]
     Indication: CORONARY ARTERY DISEASE
     Dates: start: 19900101
  3. DILATREND [Concomitant]
     Indication: CORONARY ARTERY DISEASE
     Dates: start: 19800101
  4. NORVASC [Concomitant]
     Indication: CORONARY ARTERY DISEASE
     Dates: start: 20041201
  5. VASCACE PLUS [Concomitant]
     Indication: CORONARY ARTERY DISEASE
     Dosage: 5 MG, 12.5 MG
     Dates: start: 20041201
  6. OMIMIC [Concomitant]
     Indication: BENIGN PROSTATIC HYPERPLASIA
     Dates: start: 20040101
  7. PROSCAR [Concomitant]
     Indication: BENIGN PROSTATIC HYPERPLASIA
     Dates: start: 20040101
  8. SINTROM [Concomitant]
     Indication: CORONARY ARTERY DISEASE
     Dates: start: 20060201
  9. LASIX [Concomitant]
     Indication: CARDIAC FAILURE
     Dates: start: 20061101
  10. INSPRA [Concomitant]
     Indication: CARDIAC FAILURE
     Dates: start: 20060401
  11. VASTAREL [Concomitant]
     Indication: VERTIGO
     Dates: start: 20070101
  12. SYMBICORT [Concomitant]
     Indication: OBSTRUCTIVE AIRWAYS DISORDER
     Dates: start: 20070301
  13. COMMERCIAL HUMIRA [Concomitant]
     Indication: RHEUMATOID ARTHRITIS
     Route: 058
     Dates: start: 20031222

REACTIONS (1)
  - COLORECTAL CANCER [None]
